FAERS Safety Report 9059727 (Version 1)
Quarter: 2013Q1

REPORT INFORMATION
  Report Type: Spontaneous
  Country: GB (occurrence: GB)
  Receive Date: 20130211
  Receipt Date: 20130211
  Transmission Date: 20140127
  Serious: Yes (Other)
  Sender: FDA-Public Use
  Company Number: GB-PFIZER INC-2013013931

PATIENT
  Age: 51 Year
  Sex: Male

DRUGS (12)
  1. LYRICA [Suspect]
     Indication: EPILEPSY
     Dosage: 300 MG, 1X/DAY
     Route: 048
  2. DIAZEPAM [Concomitant]
     Indication: DRUG DEPENDENCE
     Dosage: 10 MG, 1X/DAY
     Route: 048
  3. DIAZEPAM [Concomitant]
     Indication: ALCOHOLISM
  4. METHADONE [Concomitant]
     Indication: DRUG DEPENDENCE
     Dosage: 50 ML (1MG/ML), 1X/DAY
     Route: 048
  5. METHADONE [Concomitant]
     Indication: ALCOHOLISM
  6. EPILIM CHRONO [Concomitant]
     Indication: EPILEPSY
     Dosage: 500 MG, 1X/DAY
     Route: 048
  7. THIAMINE [Concomitant]
     Indication: ALCOHOLISM
     Dosage: 100 MG, 1X/DAY
     Route: 048
  8. THIAMINE [Concomitant]
     Indication: DRUG DEPENDENCE
  9. FOLIC ACID [Concomitant]
     Indication: DRUG DEPENDENCE
     Dosage: 5 MG, 1X/DAY
     Route: 048
  10. FOLIC ACID [Concomitant]
     Indication: ALCOHOLISM
  11. LANSOPRAZOLE [Concomitant]
     Indication: DRUG DEPENDENCE
     Dosage: 30 MG, 1X/DAY
     Route: 048
  12. LANSOPRAZOLE [Concomitant]
     Indication: ALCOHOLISM

REACTIONS (1)
  - Drug abuse [Unknown]
